FAERS Safety Report 18195856 (Version 1)
Quarter: 2020Q3

REPORT INFORMATION
  Report Type: Spontaneous
  Country: ES (occurrence: ES)
  Receive Date: 20200825
  Receipt Date: 20200825
  Transmission Date: 20201103
  Serious: Yes (Other)
  Sender: FDA-Public Use
  Company Number: ES-ELI_LILLY_AND_COMPANY-ES202008006298

PATIENT
  Age: 45 Year
  Sex: Female

DRUGS (5)
  1. CANDESARTAN. [Concomitant]
     Active Substance: CANDESARTAN
     Indication: MIGRAINE WITHOUT AURA
     Dosage: 16 MG, DAILY
     Route: 048
     Dates: start: 20200124
  2. TRYPTIZOL [Concomitant]
     Active Substance: AMITRIPTYLINE HYDROCHLORIDE
     Indication: HEADACHE
     Dosage: 50 MG, DAILY
     Route: 048
     Dates: start: 20190617
  3. ALMOGRAN [Concomitant]
     Active Substance: ALMOTRIPTAN MALATE
     Indication: HEADACHE
     Dosage: 25 MG, EVERY 72 HOURS
     Route: 048
     Dates: start: 20190618
  4. SULPIRIDA [Concomitant]
     Active Substance: SULPIRIDE
     Indication: MYALGIA
     Dosage: 100 MG, EVERY 12 HOURS
     Route: 048
     Dates: start: 20191128
  5. EMGALITY [Suspect]
     Active Substance: GALCANEZUMAB-GNLM
     Indication: MIGRAINE WITHOUT AURA
     Dosage: 120 MG, EVERY 30 DAYS
     Route: 048
     Dates: start: 20200609

REACTIONS (2)
  - Incorrect route of product administration [Unknown]
  - Vertigo [Recovering/Resolving]

NARRATIVE: CASE EVENT DATE: 20200609
